FAERS Safety Report 14327601 (Version 1)
Quarter: 2017Q4

REPORT INFORMATION
  Report Type: Spontaneous
  Country: IL (occurrence: IL)
  Receive Date: 20171227
  Receipt Date: 20171227
  Transmission Date: 20180321
  Serious: Yes (Other)
  Sender: FDA-Public Use
  Company Number: IL-TEVA-2017-IL-835361

PATIENT
  Age: 86 Year
  Sex: Female

DRUGS (5)
  1. ATORVASTATIN 80MG [Suspect]
     Active Substance: ATORVASTATIN
     Indication: PROPHYLAXIS
     Dosage: 80 MILLIGRAM DAILY;
     Dates: start: 201711, end: 201712
  2. EZETROL [Concomitant]
     Active Substance: EZETIMIBE
  3. CARDILOC [Concomitant]
     Active Substance: BISOPROLOL FUMARATE
  4. AMIODARONE HYDROCHLORIDE. [Suspect]
     Active Substance: AMIODARONE HYDROCHLORIDE
     Indication: ARRHYTHMIA
  5. TRITACE [Concomitant]
     Active Substance: RAMIPRIL
     Indication: ARRHYTHMIA
     Dates: start: 201711

REACTIONS (8)
  - Abdominal pain [Recovered/Resolved]
  - Nausea [Recovered/Resolved]
  - Gastrooesophageal reflux disease [Recovered/Resolved]
  - Thyroid disorder [Recovering/Resolving]
  - Dermatitis [Recovering/Resolving]
  - Hypertension [Recovering/Resolving]
  - Feeling abnormal [Recovered/Resolved]
  - Arrhythmia [Recovering/Resolving]

NARRATIVE: CASE EVENT DATE: 201711
